FAERS Safety Report 9869686 (Version 1)
Quarter: 2014Q1

REPORT INFORMATION
  Report Type: Spontaneous
  Country: US (occurrence: None)
  Receive Date: 20140131
  Receipt Date: 20140131
  Transmission Date: 20141002
  Serious: Yes (Other)
  Sender: FDA-Public Use
  Company Number: SYM-2014-15536

PATIENT
  Age: 27 Year
  Sex: Female

DRUGS (5)
  1. ELONTRIL [Suspect]
     Indication: DEPRESSION
     Route: 048
     Dates: start: 20131009, end: 20131012
  2. EUTIROX(LEVOTHYROXINE SODIUM)(LEVOTHYRXINE SODIUM) [Concomitant]
  3. NOVORAPID(INSULIN ASPART)(INSULIN ASPART) [Concomitant]
  4. NOVOMIX(NOVOMIX)(INSULIN ASPART, INSULIN ASPART PROTAMINE(CRYSTALLINE) [Concomitant]
  5. LANTUS(INSULIN GLARGINE)(INSULIN GLARGINE) [Concomitant]

REACTIONS (1)
  - Hypertensive crisis [None]
